FAERS Safety Report 9770279 (Version 2)
Quarter: 2013Q4

REPORT INFORMATION
  Report Type: Report from Study
  Country: CA (occurrence: CA)
  Receive Date: 20131218
  Receipt Date: 20131218
  Transmission Date: 20140711
  Serious: Yes (Other)
  Sender: FDA-Public Use
  Company Number: CA-INCYTE CORPORATION-2012IN001853

PATIENT
  Sex: Female

DRUGS (2)
  1. JAKAVI [Suspect]
     Indication: MYELOFIBROSIS
     Dosage: 10 MG, BID
     Route: 048
     Dates: start: 201209
  2. JAKAVI [Suspect]
     Dosage: 15 MG, BID
     Dates: start: 20120911

REACTIONS (5)
  - Urinary tract infection [Unknown]
  - Malaise [Unknown]
  - Pain in extremity [Unknown]
  - Asthenia [Unknown]
  - Headache [Recovering/Resolving]
